FAERS Safety Report 8327447-5 (Version None)
Quarter: 2012Q2

REPORT INFORMATION
  Report Type: 
  Country: None (occurrence: None)
  Receive Date: 20120423
  Receipt Date: 20120412
  Transmission Date: 20120825
  Serious: Yes (Other)
  Sender: FDA-Public Use
  Company Number: 2012031990

PATIENT
  Age: 41 Year
  Sex: Male

DRUGS (1)
  1. HIZENTRA [Suspect]
     Indication: IMMUNODEFICIENCY COMMON VARIABLE
     Dates: start: 20100101

REACTIONS (5)
  - DYSPNOEA [None]
  - TRACHEAL DISORDER [None]
  - SPLEEN DISORDER [None]
  - PLATELET COUNT DECREASED [None]
  - SPLENOMEGALY [None]
